FAERS Safety Report 17441567 (Version 5)
Quarter: 2021Q3

REPORT INFORMATION
  Report Type: Report from Study
  Country: US (occurrence: US)
  Receive Date: 20200220
  Receipt Date: 20210806
  Transmission Date: 20211014
  Serious: Yes (Congenital Anomaly, Other)
  Sender: FDA-Public Use
  Company Number: US-GILEAD-2020-0451637

PATIENT

DRUGS (4)
  1. REYATAZ [Suspect]
     Active Substance: ATAZANAVIR SULFATE
     Indication: HIV INFECTION
     Dosage: 300 MG, QD
     Route: 064
     Dates: start: 20191227, end: 2020
  2. EMTRICITABINE;TENOFOVIR DISOPROXIL FUMARATE [Suspect]
     Active Substance: EMTRICITABINE\TENOFOVIR DISOPROXIL FUMARATE
     Indication: HIV INFECTION
     Dosage: 1 DOSAGE FORM
     Route: 064
     Dates: start: 20191227, end: 2020
  3. NORVIR [Suspect]
     Active Substance: RITONAVIR
     Indication: HIV INFECTION
     Dosage: 100 MG, QD
     Route: 064
     Dates: start: 20191227, end: 2020
  4. DOVATO [Suspect]
     Active Substance: DOLUTEGRAVIR SODIUM\LAMIVUDINE
     Indication: HIV INFECTION
     Dosage: 1 DOSAGE FORM
     Route: 064
     Dates: end: 20191227

REACTIONS (7)
  - Congenital nose malformation [Not Recovered/Not Resolved]
  - Foetal chromosome abnormality [Not Recovered/Not Resolved]
  - Exomphalos [Not Recovered/Not Resolved]
  - Hypotelorism of orbit [Not Recovered/Not Resolved]
  - Congenital teratoma [Not Recovered/Not Resolved]
  - Foetal exposure during pregnancy [Recovered/Resolved]
  - Holoprosencephaly [Not Recovered/Not Resolved]

NARRATIVE: CASE EVENT DATE: 20191227
